FAERS Safety Report 7031591-2 (Version None)
Quarter: 2010Q4

REPORT INFORMATION
  Report Type: 
  Country: None (occurrence: None)
  Receive Date: 20101006
  Receipt Date: 20100929
  Transmission Date: 20110411
  Serious: Yes (Other)
  Sender: FDA-Public Use
  Company Number: US-AMGEN-KDL442757

PATIENT
  Sex: Male
  Weight: 62.7 kg

DRUGS (8)
  1. PROCRIT [Suspect]
     Indication: DIALYSIS
     Dates: start: 20060915
  2. COREG [Concomitant]
     Route: 048
     Dates: start: 20060101
  3. FLOMAX [Concomitant]
     Route: 048
     Dates: start: 20080101
  4. PROSCAR [Concomitant]
     Route: 048
     Dates: start: 20060101
  5. NIACIN [Concomitant]
     Route: 048
     Dates: start: 19990101
  6. ZOCOR [Concomitant]
     Route: 048
     Dates: start: 20050101
  7. ASPIRIN [Concomitant]
     Route: 048
     Dates: start: 20050101
  8. ATROVENT [Concomitant]

REACTIONS (6)
  - CARDIAC FAILURE CONGESTIVE [None]
  - DECREASED APPETITE [None]
  - FALL [None]
  - FEELING ABNORMAL [None]
  - FEELING HOT [None]
  - PYREXIA [None]
